FAERS Safety Report 25535480 (Version 1)
Quarter: 2025Q3

REPORT INFORMATION
  Report Type: Spontaneous
  Country: US (occurrence: US)
  Receive Date: 20250709
  Receipt Date: 20250709
  Transmission Date: 20251020
  Serious: No
  Sender: FOUNDATION CONSUMER HEALTHCARE, LLC
  Company Number: US-FOUNDATIONCONSUMERHC-2025-US-013385

PATIENT
  Age: 44 Year
  Sex: Female
  Weight: 71.67 kg

DRUGS (7)
  1. PLAN B ONE-STEP [Suspect]
     Active Substance: LEVONORGESTREL
     Indication: Post coital contraception
     Route: 048
     Dates: start: 20250216, end: 20250216
  2. VITAMIN B12 [Concomitant]
     Active Substance: CYANOCOBALAMIN
  3. vitamin D3+ K2 [Concomitant]
  4. VITAMIN E [Concomitant]
     Active Substance: .ALPHA.-TOCOPHEROL
  5. beef protein [Concomitant]
  6. OXYCODONE [Concomitant]
     Active Substance: OXYCODONE
  7. TIZANIDINE [Concomitant]
     Active Substance: TIZANIDINE

REACTIONS (6)
  - Vaginal haemorrhage [Recovered/Resolved]
  - Breast tenderness [Recovered/Resolved]
  - Vomiting [Recovered/Resolved]
  - Vaginal haemorrhage [Recovered/Resolved]
  - Intentional product misuse [Recovered/Resolved]
  - Inappropriate schedule of product administration [Recovered/Resolved]

NARRATIVE: CASE EVENT DATE: 20250216
